FAERS Safety Report 4395932-7 (Version None)
Quarter: 2004Q3

REPORT INFORMATION
  Report Type: 
  Country: None (occurrence: None)
  Receive Date: 20040713
  Receipt Date: 20040702
  Transmission Date: 20050211
  Serious: Yes (Hospitalization)
  Sender: FDA-Public Use
  Company Number: JP-MERCK-0407USA00487

PATIENT
  Age: 54 Year
  Sex: Male

DRUGS (2)
  1. [THERAPY UNSPECIFIED] [Suspect]
     Route: 042
     Dates: start: 20040702
  2. PEPCID [Suspect]
     Route: 042
     Dates: start: 20040630, end: 20040702

REACTIONS (2)
  - ALANINE AMINOTRANSFERASE INCREASED [None]
  - BLOOD CREATINE PHOSPHOKINASE INCREASED [None]
